FAERS Safety Report 11034840 (Version 2)
Quarter: 2015Q2

REPORT INFORMATION
  Report Type: Spontaneous
  Country: US (occurrence: US)
  Receive Date: 20150415
  Receipt Date: 20150525
  Transmission Date: 20150821
  Serious: No
  Sender: FDA-Public Use
  Company Number: US-JNJFOC-20140503029

PATIENT
  Age: 93 Year
  Sex: Female

DRUGS (1)
  1. XARELTO [Suspect]
     Active Substance: RIVAROXABAN
     Indication: PULMONARY EMBOLISM
     Dosage: DAILY
     Route: 048
     Dates: end: 20140502

REACTIONS (2)
  - Increased tendency to bruise [Unknown]
  - Incorrect dose administered [Unknown]
